FAERS Safety Report 15734490 (Version 1)
Quarter: 2018Q4

REPORT INFORMATION
  Report Type: Report from Study
  Country: DE (occurrence: DE)
  Receive Date: 20181218
  Receipt Date: 20181218
  Transmission Date: 20190205
  Serious: Yes (Hospitalization)
  Sender: FDA-Public Use
  Company Number: DE-ACTELION-A-CH2018-183394

PATIENT
  Age: 78 Year
  Sex: Male
  Weight: 62 kg

DRUGS (13)
  1. VOLIBRIS [Concomitant]
     Active Substance: AMBRISENTAN
     Dosage: 10 UNK, QD
     Route: 048
     Dates: start: 20120313
  2. MAREEN [Concomitant]
     Indication: DEPRESSION
     Dosage: UNK
     Route: 048
     Dates: start: 201402
  3. PROCORALAN [Concomitant]
     Active Substance: IVABRADINE
     Indication: ANGINA PECTORIS
     Dosage: 5 MG, UNK
     Route: 048
  4. ADCIRCA [Concomitant]
     Active Substance: TADALAFIL
     Dosage: 20 UNK, QD
     Route: 048
     Dates: start: 20120313
  5. BAYOTENSIN AKUT [Concomitant]
     Active Substance: NITRENDIPINE
     Indication: HYPERTONIA
     Dosage: UNK
     Route: 048
     Dates: start: 201203
  6. AMLODIPIN [Concomitant]
     Active Substance: AMLODIPINE BESYLATE
     Indication: HYPERTONIA
     Dosage: 2.5 MG, UNK
     Route: 048
  7. L-THYROXIN [Concomitant]
     Active Substance: LEVOTHYROXINE SODIUM
     Indication: HYPOTHYROIDISM
     Dosage: UNK
     Route: 048
     Dates: start: 20120106
  8. INSPRA [Concomitant]
     Active Substance: EPLERENONE
     Indication: ANGINA PECTORIS
     Dosage: UNK
     Route: 048
  9. DEKRISTOL [Concomitant]
     Active Substance: CHOLECALCIFEROL
     Dosage: UNK
     Route: 048
  10. PANTOPRAZOL [Concomitant]
     Active Substance: PANTOPRAZOLE SODIUM
     Indication: GASTRITIS PROPHYLAXIS
     Dosage: UNK
     Route: 048
  11. ATORVASTATIN [Concomitant]
     Active Substance: ATORVASTATIN
     Dosage: 10 MG, UNK
     Route: 048
  12. CANDESARTAN. [Concomitant]
     Active Substance: CANDESARTAN
     Indication: HYPERTONIA
     Dosage: 16 MG, UNK
     Route: 048
     Dates: start: 20131009
  13. UPTRAVI [Suspect]
     Active Substance: SELEXIPAG
     Indication: PULMONARY ARTERIAL HYPERTENSION
     Dosage: 200 MCG, QD
     Route: 048
     Dates: start: 20171123, end: 20181025

REACTIONS (4)
  - Pulmonary arterial hypertension [Unknown]
  - Condition aggravated [Unknown]
  - Renal impairment [Unknown]
  - Disease progression [Unknown]
